FAERS Safety Report 7024601-X (Version None)
Quarter: 2010Q4

REPORT INFORMATION
  Report Type: 
  Country: None (occurrence: None)
  Receive Date: 20101001
  Receipt Date: 20100921
  Transmission Date: 20110411
  Serious: Yes (Death, Life-Threatening, Hospitalization, Disabling, Other)
  Sender: FDA-Public Use
  Company Number: CY-PFIZER INC-2009198817

PATIENT
  Age: 16 Year
  Sex: Male

DRUGS (1)
  1. ZITHROMAX [Suspect]
     Indication: VIRAL INFECTION
     Dosage: 500 MG, 1X/DAY
     Route: 048
     Dates: start: 20090401, end: 20090401

REACTIONS (24)
  - ACUTE HEPATIC FAILURE [None]
  - AGITATION [None]
  - BLOOD GLUCOSE INCREASED [None]
  - BONE MARROW DISORDER [None]
  - BONE MARROW FAILURE [None]
  - BRAIN INJURY [None]
  - COAGULOPATHY [None]
  - DEATH [None]
  - DRUG INEFFECTIVE [None]
  - FATIGUE [None]
  - HEPATIC ENCEPHALOPATHY [None]
  - HEPATIC NECROSIS [None]
  - HEPATITIS [None]
  - HYPERREFLEXIA [None]
  - INFLUENZA LIKE ILLNESS [None]
  - INTERNATIONAL NORMALISED RATIO INCREASED [None]
  - INTRACRANIAL PRESSURE INCREASED [None]
  - NEUROLOGICAL SYMPTOM [None]
  - OPERATIVE HAEMORRHAGE [None]
  - OROPHARYNGEAL PAIN [None]
  - PANCYTOPENIA [None]
  - PROTHROMBIN TIME PROLONGED [None]
  - RASH [None]
  - RENAL FAILURE [None]
